FAERS Safety Report 14904112 (Version 1)
Quarter: 2018Q2

REPORT INFORMATION
  Report Type: Spontaneous
  Country: ES (occurrence: ES)
  Receive Date: 20180516
  Receipt Date: 20180516
  Transmission Date: 20180711
  Serious: Yes (Other)
  Sender: FDA-Public Use
  Company Number: ES-BAUSCH-BL-2018-014178

PATIENT
  Sex: Female

DRUGS (1)
  1. YELLOX 0.9 MG/ML EYE DROPS, SOLUTION [Suspect]
     Active Substance: BROMFENAC SODIUM
     Indication: MACULAR OEDEMA
     Route: 065

REACTIONS (2)
  - Hypertensive crisis [Recovered/Resolved]
  - Blood pressure abnormal [Recovered/Resolved]
